FAERS Safety Report 7248882-2 (Version None)
Quarter: 2011Q1

REPORT INFORMATION
  Report Type: 
  Country: None (occurrence: None)
  Receive Date: 20110128
  Receipt Date: 20100713
  Transmission Date: 20110831
  Serious: Yes (Hospitalization, Other)
  Sender: FDA-Public Use
  Company Number: US-BAYER-200933776NA

PATIENT
  Sex: Female
  Weight: 91 kg

DRUGS (7)
  1. SUCCINYLCHOLINE CHLORIDE [Concomitant]
     Route: 042
     Dates: start: 20071023
  2. NAPROXEN [Concomitant]
     Dosage: UNK
     Dates: start: 20070909
  3. LEVONORGESTREL + ETHINYL ESTRADIOL [Concomitant]
     Indication: UTERINE LEIOMYOMA
  4. YAZ [Suspect]
     Indication: PRODUCT USED FOR UNKNOWN INDICATION
     Route: 048
     Dates: start: 20070501, end: 20071015
  5. NSAID'S [Concomitant]
     Dosage: UNK
  6. NSAID'S [Concomitant]
     Route: 065
     Dates: start: 19990101
  7. LEVONORGESTREL + ETHINYL ESTRADIOL [Concomitant]
     Indication: MENORRHAGIA
     Dosage: UNK
     Dates: start: 20071001, end: 20071022

REACTIONS (7)
  - PANIC ATTACK [None]
  - ABASIA [None]
  - POST-TRAUMATIC STRESS DISORDER [None]
  - HYPERCOAGULATION [None]
  - PULMONARY EMBOLISM [None]
  - DEEP VEIN THROMBOSIS [None]
  - PAIN IN EXTREMITY [None]
